FAERS Safety Report 13483673 (Version 20)
Quarter: 2018Q2

REPORT INFORMATION
  Report Type: Spontaneous
  Country: GB (occurrence: GB)
  Receive Date: 20170424
  Receipt Date: 20180621
  Transmission Date: 20180711
  Serious: Yes (Hospitalization, Other)
  Sender: FDA-Public Use
  Company Number: GB-MYLANLABS-2017M1024983

PATIENT
  Age: 55 Year
  Sex: Female

DRUGS (3)
  1. CLOZARIL [Suspect]
     Active Substance: CLOZAPINE
     Indication: SCHIZOPHRENIA
     Dosage: UNK
     Route: 048
     Dates: start: 20040728
  2. CLOZARIL [Suspect]
     Active Substance: CLOZAPINE
     Dosage: UNK
     Route: 048
     Dates: start: 20170807
  3. CLOZARIL [Suspect]
     Active Substance: CLOZAPINE
     Dosage: UNK
     Route: 048
     Dates: start: 20170419, end: 20170420

REACTIONS (13)
  - Thrombocytopenia [Recovered/Resolved]
  - Refusal of treatment by patient [Unknown]
  - Ovarian cancer [Unknown]
  - Self-medication [Unknown]
  - Anaemia [Recovering/Resolving]
  - Neutropenia [Recovered/Resolved]
  - Schizophrenia [Unknown]
  - Glomerular filtration rate decreased [Unknown]
  - Nasopharyngitis [Recovered/Resolved]
  - Blood calcium increased [Unknown]
  - White blood cell count decreased [Recovered/Resolved]
  - Hospitalisation [Unknown]
  - Malaise [Unknown]

NARRATIVE: CASE EVENT DATE: 2017
